FAERS Safety Report 8388700-2 (Version None)
Quarter: 2012Q2

REPORT INFORMATION
  Report Type: 
  Country: None (occurrence: None)
  Receive Date: 20120527
  Receipt Date: 20120228
  Transmission Date: 20120825
  Serious: Yes (Other)
  Sender: FDA-Public Use
  Company Number: PHHY2012GT044439

PATIENT
  Age: 81 Year
  Sex: Female

DRUGS (3)
  1. ZOLEDRONOC ACID [Suspect]
     Indication: OSTEOPOROSIS
     Dosage: 5 MG, YEARLY
     Route: 042
     Dates: start: 20080101
  2. VITAMIN D [Concomitant]
     Dosage: 1000 IU, QD
  3. OSTEOCARE [Concomitant]
     Dosage: UNK UKN, UNK

REACTIONS (2)
  - SPINAL COMPRESSION FRACTURE [None]
  - BONE DENSITY DECREASED [None]
